FAERS Safety Report 17595906 (Version 1)
Quarter: 2020Q1

REPORT INFORMATION
  Report Type: Spontaneous
  Country: US (occurrence: US)
  Receive Date: 20200329
  Receipt Date: 20200329
  Transmission Date: 20200409
  Serious: Yes (Hospitalization)
  Sender: FDA-Public Use
  Company Number: US-LEXICON PHARMACEUTICALS, INC-20-1606-00240

PATIENT
  Age: 78 Year
  Sex: Male

DRUGS (2)
  1. ANTI-DEPRESSION MEDICATION [Suspect]
     Active Substance: UNSPECIFIED INGREDIENT
  2. XERMELO [Suspect]
     Active Substance: TELOTRISTAT ETHYL
     Indication: CARCINOID SYNDROME

REACTIONS (3)
  - Skin papilloma [Unknown]
  - Pneumonia [Unknown]
  - Diarrhoea [Unknown]
